FAERS Safety Report 9975932 (Version 1)
Quarter: 2014Q1

REPORT INFORMATION
  Report Type: Spontaneous
  Country: CN (occurrence: CN)
  Receive Date: 20140306
  Receipt Date: 20140306
  Transmission Date: 20141002
  Serious: Yes (Other)
  Sender: FDA-Public Use
  Company Number: CN-MYLANLABS-2014S1004317

PATIENT
  Age: 43 Year
  Sex: Male

DRUGS (14)
  1. CYCLOPHOSPHAMIDE [Suspect]
     Indication: NON-HODGKIN^S LYMPHOMA
     Dosage: PART OF R-CHOP CHEMOTHERAPY; RECEIVED 6 CYCLES WITHIN 4M
     Route: 065
     Dates: start: 2005
  2. CYCLOPHOSPHAMIDE [Suspect]
     Indication: NON-HODGKIN^S LYMPHOMA
     Dosage: PART OF HIGH-DOSE CMV THERAPY; RECEIVED 1 CYCLE/M FOR 2M
     Route: 065
     Dates: start: 2005
  3. RITUXIMAB [Suspect]
     Indication: NON-HODGKIN^S LYMPHOMA
     Dosage: PART OF R-CHOP CHEMOTHERAPY; RECEIVED 6 CYCLES WITHIN 4M
     Route: 065
     Dates: start: 2005
  4. RITUXIMAB [Suspect]
     Indication: NON-HODGKIN^S LYMPHOMA
     Dosage: PART OF R-DHAP CHEMOTHERAPY; RECEIVED 3 CYCLES OVER 2M
     Route: 065
     Dates: start: 2005
  5. DOXORUBICIN [Suspect]
     Indication: NON-HODGKIN^S LYMPHOMA
     Dosage: PART OF R-CHOP CHEMOTHERAPY; RECEIVED 6 CYCLES WITHIN 4M
     Route: 065
     Dates: start: 2005
  6. VINCRISTINE [Suspect]
     Indication: NON-HODGKIN^S LYMPHOMA
     Dosage: PART OF R-CHOP CHEMOTHERAPY; RECEIVED 6 CYCLES WITHIN 4M
     Route: 065
     Dates: start: 2005
  7. PREDNISONE [Suspect]
     Indication: NON-HODGKIN^S LYMPHOMA
     Dosage: PART OF R-CHOP CHEMOTHERAPY; RECEIVED 6 CYCLES WITHIN 4M
     Route: 065
     Dates: start: 2005
  8. DEXAMETHASONE [Suspect]
     Indication: NON-HODGKIN^S LYMPHOMA
     Dosage: PART OF R-DHAP CHEMOTHERAPY; RECEIVED 3 CYCLES OVER 2M
     Route: 065
  9. DEXAMETHASONE [Suspect]
     Indication: NON-HODGKIN^S LYMPHOMA
     Dosage: PART OF HIGH-DOSE CMV THERAPY; RECEIVED 1 CYCLE/M FOR 2M
     Route: 065
  10. CISPLATIN [Suspect]
     Indication: NON-HODGKIN^S LYMPHOMA
     Dosage: PART OF R-DHAP CHEMOTHERAPY; RECEIVED 3 CYCLES OVER 2M
     Route: 065
  11. CYTARABINE [Suspect]
     Indication: NON-HODGKIN^S LYMPHOMA
     Dosage: PART OF R-DHAP CHEMOTHERAPY; RECEIVED 3 CYCLES OVER 2M
     Route: 065
  12. ETOPOSIDE [Suspect]
     Indication: NON-HODGKIN^S LYMPHOMA
     Dosage: PART OF HIGH-DOSE CMV THERAPY; RECEIVED 1 CYCLE/M FOR 2M
     Route: 065
  13. MELPHALAN [Suspect]
     Indication: NON-HODGKIN^S LYMPHOMA
     Dosage: PART OF HIGH-DOSE CMV THERAPY; RECEIVED 1 CYCLE/M FOR 2M
     Route: 065
  14. GEMCITABINE [Suspect]
     Indication: NON-HODGKIN^S LYMPHOMA
     Dosage: 1500MG; RECEIVED WITH HIGH-DOSE CMV THERAPY; RECEIVED 1 CYCLE/M FOR 2M
     Route: 065

REACTIONS (1)
  - Hepatitis B [Recovered/Resolved]
